FAERS Safety Report 23749992 (Version 1)
Quarter: 2024Q2

REPORT INFORMATION
  Report Type: Spontaneous
  Country: TR (occurrence: TR)
  Receive Date: 20240417
  Receipt Date: 20240417
  Transmission Date: 20240716
  Serious: Yes (Other)
  Sender: FDA-Public Use
  Company Number: TR-STRIDES ARCOLAB LIMITED-2024SP004389

PATIENT
  Age: 26 Month
  Sex: Male

DRUGS (6)
  1. PREDNISOLONE [Suspect]
     Active Substance: PREDNISOLONE
     Indication: Familial hypocalciuric hypercalcaemia
     Dosage: UNK
     Route: 065
  2. FUROSEMIDE [Suspect]
     Active Substance: FUROSEMIDE
     Indication: Familial hypocalciuric hypercalcaemia
     Dosage: UNK
     Route: 065
  3. CINACALCET [Suspect]
     Active Substance: CINACALCET
     Indication: Familial hypocalciuric hypercalcaemia
     Dosage: 15 MILLIGRAM, BID
     Route: 065
  4. CINACALCET [Suspect]
     Active Substance: CINACALCET
     Dosage: 30 MILLIGRAM, BID
     Route: 065
  5. PHOSPHORUS [Suspect]
     Active Substance: PHOSPHORUS
     Indication: Familial hypocalciuric hypercalcaemia
     Dosage: UNK
     Route: 048
  6. PAMIDRONATE [Concomitant]
     Active Substance: PAMIDRONATE DISODIUM
     Indication: Familial hypocalciuric hypercalcaemia
     Dosage: 1 MILLIGRAM/KILOGRAM, SINGLE DOSE
     Route: 042

REACTIONS (2)
  - Drug ineffective [Unknown]
  - Off label use [Unknown]
